FAERS Safety Report 10331739 (Version 2)
Quarter: 2014Q3

REPORT INFORMATION
  Report Type: Spontaneous
  Country: US (occurrence: US)
  Receive Date: 20140722
  Receipt Date: 20140722
  Transmission Date: 20150326
  Serious: Yes (Hospitalization)
  Sender: FDA-Public Use
  Company Number: US-AMGEN-USASP2014040915

PATIENT
  Age: 35 Year
  Sex: Female

DRUGS (1)
  1. ENBREL [Suspect]
     Active Substance: ETANERCEPT
     Indication: RHEUMATOID ARTHRITIS
     Dosage: 50 MG, QWK
     Route: 065
     Dates: start: 20140305

REACTIONS (4)
  - Dysmenorrhoea [Recovered/Resolved]
  - Uterine disorder [Recovered/Resolved]
  - Menstrual disorder [Recovered/Resolved]
  - Pain of skin [Not Recovered/Not Resolved]
